FAERS Safety Report 9066686 (Version 1)
Quarter: 2013Q1

REPORT INFORMATION
  Report Type: Report from Study
  Country: PH (occurrence: PH)
  Receive Date: 20130214
  Receipt Date: 20130214
  Transmission Date: 20140127
  Serious: Yes (Other)
  Sender: FDA-Public Use
  Company Number: PH-EISAI INC-E3810-06225-CLI-PH

PATIENT
  Age: 49 None
  Sex: 0

DRUGS (2)
  1. PARIET (RABEPRAZOLE) [Suspect]
     Indication: REFLUX LARYNGITIS
     Route: 048
     Dates: start: 20130108, end: 20130111
  2. PARIET (RABEPRAZOLE) [Suspect]
     Route: 048
     Dates: start: 20130115, end: 20130115

REACTIONS (1)
  - Chest discomfort [Unknown]
